FAERS Safety Report 9494870 (Version 2)
Quarter: 2013Q3

REPORT INFORMATION
  Report Type: Spontaneous
  Country: US (occurrence: US)
  Receive Date: 20130903
  Receipt Date: 20130903
  Transmission Date: 20140515
  Serious: Yes (Other)
  Sender: FDA-Public Use
  Company Number: US-009507513-1112USA01086

PATIENT
  Sex: Female

DRUGS (2)
  1. MK-0000 (111) [Suspect]
  2. ACTONEL [Suspect]
     Indication: OSTEOPOROSIS
     Route: 048

REACTIONS (2)
  - Femur fracture [Unknown]
  - Intramedullary rod insertion [Unknown]
